FAERS Safety Report 4947674-4 (Version None)
Quarter: 2006Q1

REPORT INFORMATION
  Report Type: 
  Country: None (occurrence: None)
  Receive Date: 20060317
  Receipt Date: 20060317
  Transmission Date: 20060701
  Serious: Yes (Hospitalization)
  Sender: FDA-Public Use
  Company Number: None

PATIENT
  Age: 47 Year
  Sex: Male
  Weight: 126.5536 kg

DRUGS (8)
  1. LIDODERM [Suspect]
     Indication: SHOULDER PAIN
     Dosage: ONE PATCH ON SKIN 12 HRS
     Dates: start: 20060309, end: 20060311
  2. COUMADIN [Concomitant]
  3. PLAVIX [Concomitant]
  4. VYTOXIN [Concomitant]
  5. PROTONIX [Concomitant]
  6. LISINOPRIL [Concomitant]
  7. METOPROLOL [Concomitant]
  8. AMIODARONE HCL [Concomitant]

REACTIONS (3)
  - CHEST PAIN [None]
  - DYSPNOEA [None]
  - PAIN [None]
